FAERS Safety Report 20775674 (Version 2)
Quarter: 2022Q3

REPORT INFORMATION
  Report Type: Report from Study
  Country: US (occurrence: US)
  Receive Date: 20220502
  Receipt Date: 20220720
  Transmission Date: 20221027
  Serious: Yes (Other)
  Sender: FDA-Public Use
  Company Number: US-BAYER-2022A059604

PATIENT
  Age: 50 Year
  Sex: Female
  Weight: 64.399 kg

DRUGS (12)
  1. GADOBUTROL [Suspect]
     Active Substance: GADOBUTROL
     Indication: Ovarian cyst
     Dosage: UNK, ONCE
  2. GADOBUTROL [Suspect]
     Active Substance: GADOBUTROL
     Indication: Headache
  3. GADOBUTROL [Suspect]
     Active Substance: GADOBUTROL
     Indication: Pain in extremity
  4. GADOPENTETATE DIMEGLUMINE [Suspect]
     Active Substance: GADOPENTETATE DIMEGLUMINE
  5. GADOBENATE DIMEGLUMINE [Suspect]
     Active Substance: GADOBENATE DIMEGLUMINE
  6. GADODIAMIDE [Suspect]
     Active Substance: GADODIAMIDE
  7. CLONAZEPAM [Concomitant]
     Active Substance: CLONAZEPAM
  8. VITAMIN K [Concomitant]
     Active Substance: PHYTONADIONE
  9. VITAMIN B12 [Concomitant]
     Active Substance: CYANOCOBALAMIN
  10. CHLORELLA [CHLORELLA SPP.] [Concomitant]
  11. ASTAXANTHIN [Concomitant]
     Active Substance: ASTAXANTHIN
  12. OMEGA-3 FATTY ACIDS [Concomitant]
     Active Substance: OMEGA-3 FATTY ACIDS

REACTIONS (4)
  - Gadolinium deposition disease [None]
  - Mitochondrial toxicity [None]
  - Nontherapeutic agent urine positive [None]
  - Cytokine increased [None]
